FAERS Safety Report 20752008 (Version 2)
Quarter: 2022Q2

REPORT INFORMATION
  Report Type: Spontaneous
  Country: GB (occurrence: GB)
  Receive Date: 20220426
  Receipt Date: 20220509
  Transmission Date: 20220721
  Serious: Yes (Other)
  Sender: FDA-Public Use
  Company Number: None

PATIENT
  Age: 64 Year
  Sex: Male

DRUGS (1)
  1. SPIRIVA [Suspect]
     Active Substance: TIOTROPIUM BROMIDE MONOHYDRATE
     Indication: Product used for unknown indication
     Dates: start: 20220415, end: 20220415

REACTIONS (9)
  - Dyspnoea [Recovering/Resolving]
  - Chest discomfort [Unknown]
  - Oropharyngeal pain [Unknown]
  - Heart rate increased [Unknown]
  - Hyperhidrosis [Unknown]
  - Nausea [Unknown]
  - Eyelid oedema [Unknown]
  - Flushing [Unknown]
  - Cough [Unknown]

NARRATIVE: CASE EVENT DATE: 20220415
